FAERS Safety Report 8531165-8 (Version None)
Quarter: 2012Q3

REPORT INFORMATION
  Report Type: 
  Country: None (occurrence: None)
  Receive Date: 20120711
  Receipt Date: 20120625
  Transmission Date: 20120928
  Serious: Yes (Hospitalization)
  Sender: FDA-Public Use
  Company Number: DSA_58301_2012

PATIENT
  Age: 32 Year
  Sex: Male

DRUGS (3)
  1. CLAFORAN [Suspect]
     Indication: EMPYEMA
     Dosage: (4 G TID INTRAVENOUS (NOT OTHERWISE SPECIFIED))
     Route: 042
     Dates: start: 20120525, end: 20120612
  2. FOSFOCINE (FOSFOCINE - FOSFOMYCIN) (NOT SPECIFIED) [Suspect]
     Indication: EMPYEMA
     Dosage: INTRAVENOUS (NOT OTHERWISE SPECIFIED))
     Route: 042
     Dates: start: 20120525, end: 20120612
  3. FLAGYL [Suspect]
     Indication: EMPYEMA
     Dosage: (DF INTRAVENOUS (NOT OTHERWISE SPECIFIED))
     Route: 042
     Dates: start: 20120525, end: 20120612

REACTIONS (1)
  - CYTOLYTIC HEPATITIS [None]
